FAERS Safety Report 24885389 (Version 1)
Quarter: 2025Q1

REPORT INFORMATION
  Report Type: Spontaneous
  Country: US (occurrence: US)
  Receive Date: 20250124
  Receipt Date: 20250124
  Transmission Date: 20250409
  Serious: No
  Sender: PARI RESPIRATORY EQUIPMENT
  Company Number: US-PARI RESPIRATORY EQUIPMENT, INC.-2024PAR00016

PATIENT
  Age: 8 Year
  Sex: Female

DRUGS (1)
  1. KITABIS PAK [Suspect]
     Active Substance: TOBRAMYCIN
     Indication: Asthma
     Dosage: 300 MG, EVERY 12 HOURS
     Dates: start: 201911

REACTIONS (2)
  - Rhinorrhoea [Not Recovered/Not Resolved]
  - Off label use [Not Recovered/Not Resolved]

NARRATIVE: CASE EVENT DATE: 20191101
